FAERS Safety Report 5992941-9 (Version None)
Quarter: 2008Q4

REPORT INFORMATION
  Report Type: 
  Country: None (occurrence: None)
  Receive Date: 20081212
  Receipt Date: 20081211
  Transmission Date: 20090506
  Serious: Yes (Life-Threatening, Hospitalization)
  Sender: FDA-Public Use
  Company Number: GB-JNJFOC-20081104966

PATIENT
  Sex: Female

DRUGS (6)
  1. RISPERDAL CONSTA [Suspect]
     Indication: SCHIZOAFFECTIVE DISORDER
     Route: 030
  2. METFORMIN HCL [Concomitant]
     Indication: DIABETES MELLITUS
  3. INSULIN [Concomitant]
     Indication: DIABETES MELLITUS
     Route: 065
  4. SIMVASTATIN [Concomitant]
     Indication: DIABETES MELLITUS
     Route: 065
  5. GLICAZIDE [Concomitant]
     Indication: DIABETES MELLITUS
     Route: 065
  6. MIRTAZAPINE [Concomitant]
     Indication: DEPRESSION

REACTIONS (1)
  - LUNG CANCER METASTATIC [None]
